FAERS Safety Report 7541462 (Version 4)
Quarter: 2013Q1

REPORT INFORMATION
  Report Type: Spontaneous
  Country: US (occurrence: US)
  Receive Date: 20100815
  Receipt Date: 20130314
  Transmission Date: 20140127
  Serious: Yes (Other)
  Sender: FDA-Public Use
  Company Number: US-BAYER-201030074NA

PATIENT
  Age: 76 Year
  Sex: Male
  Weight: 86 kg

DRUGS (28)
  1. TRASYLOL [Suspect]
     Indication: PRODUCT USED FOR UNKNOWN INDICATION
     Dosage: 200 ML, TEST DOSE
     Route: 042
     Dates: start: 20051206, end: 20051206
  2. TRASYLOL [Suspect]
     Indication: AORTIC VALVE REPLACEMENT
     Dosage: 200 ML PUMP PRIME
     Dates: start: 20051206, end: 20051206
  3. TRASYLOL [Suspect]
     Indication: PRODUCT USED FOR UNKNOWN INDICATION
     Dosage: 200 ML LOADING DOSE
  4. TRASYLOL [Suspect]
     Indication: PRODUCT USED FOR UNKNOWN INDICATION
     Dosage: 50 ML/HR CONTINOUS INFUSION
  5. ECOTRIN [Concomitant]
     Dosage: 325 MG, QD
     Route: 048
  6. IMDUR [Concomitant]
     Dosage: 60 MG, QD
     Route: 048
  7. LASIX [FUROSEMIDE] [Concomitant]
     Dosage: 40 MG, QOD
     Route: 048
  8. NITROQUICK [Concomitant]
     Dosage: 0.4 MG, PRN
     Route: 060
  9. NORVASC [Concomitant]
     Dosage: 5 MG, QD
     Route: 048
  10. OMEPRAZOLE [Concomitant]
     Dosage: 20 MG, QD
     Route: 048
  11. PLAVIX [Concomitant]
     Dosage: UNK
     Route: 048
     Dates: end: 20051101
  12. TOPROL XL [Concomitant]
     Dosage: 50 MG, QD
     Route: 048
  13. TRICOR [Concomitant]
     Dosage: 145 MG, QD
     Route: 048
  14. ULTRAM [Concomitant]
     Dosage: 50 MG, QID
     Route: 048
  15. CALCIUM CHLORIDE [CALCIUM CHLORIDE DIHYDRATE] [Concomitant]
  16. ETOMIDATE [Concomitant]
     Dosage: UNK
     Dates: start: 20051206, end: 20051206
  17. HEPARIN [Concomitant]
     Dosage: UNK
     Dates: start: 20051206, end: 20051206
  18. INSULIN [INSULIN] [Concomitant]
     Dosage: UNK
     Dates: start: 20051206, end: 20051206
  19. LIDOCAINE [Concomitant]
     Dosage: UNK
     Dates: start: 20051206, end: 20051206
  20. MIDAZOLAM [Concomitant]
     Dosage: UNK
     Dates: start: 20051206, end: 20051206
  21. NITROGLYCERIN [Concomitant]
     Dosage: UNK
     Dates: start: 20051206, end: 20051206
  22. PROTAMINE [Concomitant]
     Dosage: UNK
     Dates: start: 20051206, end: 20051206
  23. ROCURONIUM [Concomitant]
     Dosage: UNK
     Dates: start: 20051206, end: 20051206
  24. SEVOFLURANE [Concomitant]
     Dosage: UNK
     Dates: start: 20051206, end: 20051206
  25. SUFENTANIL [Concomitant]
     Dosage: UNK
     Dates: start: 20051206, end: 20051206
  26. VANCOMYCIN [Concomitant]
     Dosage: UNK
     Dates: start: 20051206, end: 20051206
  27. SODIUM BICARBONATE [Concomitant]
     Dosage: UNK
     Dates: start: 20051206, end: 20051206
  28. BLOOD CELLS, PACKED HUMAN [Concomitant]

REACTIONS (14)
  - Multi-organ failure [Unknown]
  - Renal failure acute [None]
  - Renal failure [Unknown]
  - Renal injury [Unknown]
  - Anxiety [Unknown]
  - Fear [Unknown]
  - Pain [Unknown]
  - Depression [Unknown]
  - Injury [Unknown]
  - Anxiety [Unknown]
  - Disability [Unknown]
  - Emotional distress [Unknown]
  - Anhedonia [Unknown]
  - Off label use [None]
